FAERS Safety Report 8884625 (Version 1)
Quarter: 2012Q4

REPORT INFORMATION
  Report Type: 
  Country: FR (occurrence: FR)
  Receive Date: 20121102
  Receipt Date: 20121102
  Transmission Date: 20130627
  Serious: Yes (Hospitalization)
  Sender: FDA-Public Use
  Company Number: FR-PFIZER INC-2012271432

PATIENT
  Age: 84 Year
  Sex: Male

DRUGS (15)
  1. LYRICA [Suspect]
     Indication: PAIN
     Dosage: 150 mg, 1x/day
     Route: 048
     Dates: start: 20120809, end: 20121005
  2. SKENAN [Suspect]
     Indication: PAIN
     Dosage: 30 in morning, 60 in evening
     Route: 048
     Dates: start: 20120830, end: 20121004
  3. OXYCONTIN [Suspect]
     Indication: PAIN
     Dosage: 10 in morning, 20 in evening
     Route: 048
     Dates: start: 20121004, end: 20121005
  4. OXYNORM [Suspect]
     Indication: PAIN
     Dosage: UNK
     Route: 048
     Dates: start: 20121006, end: 201210
  5. VELCADE [Suspect]
     Indication: MYELOMA
     Dosage: D-1; D-8; D-15-; D-22
     Route: 042
     Dates: start: 201204, end: 20121004
  6. ALKERAN [Concomitant]
     Indication: MYELOMA
     Dosage: 0.2 mg/kg per day, cyclic, from D-1 to D-4 every 5 weeks
     Dates: start: 201204
  7. PREDNISONE [Concomitant]
     Indication: MYELOMA
     Dosage: 2 mg/kg per day, cyclic, from D-1 to D-4 every 5 weeks
     Dates: start: 201204
  8. GLUCOPHAGE [Concomitant]
     Dosage: UNK
  9. DOLIPRANE [Concomitant]
     Dosage: UNK
  10. MOLSIDOMINE [Concomitant]
     Dosage: UNK
  11. BISOPROLOL [Concomitant]
     Dosage: UNK
  12. PLAVIX [Concomitant]
     Dosage: UNK
  13. PRAVASTATIN [Concomitant]
     Dosage: UNK
  14. BACTRIM [Concomitant]
     Dosage: UNK
  15. ZELITREX [Concomitant]

REACTIONS (3)
  - Confusional state [Recovering/Resolving]
  - Fall [Recovering/Resolving]
  - Disorientation [Recovered/Resolved]
